FAERS Safety Report 17830641 (Version 1)
Quarter: 2020Q2

REPORT INFORMATION
  Report Type: Spontaneous
  Country: US (occurrence: US)
  Receive Date: 20200527
  Receipt Date: 20200527
  Transmission Date: 20200714
  Serious: No
  Sender: FDA-Public Use
  Company Number: US-TARO-2019TAR00649

PATIENT
  Sex: Female

DRUGS (1)
  1. TERCONAZOLE VAGINAL CREAM 0.8% [Suspect]
     Active Substance: TERCONAZOLE
     Dosage: UNK UNK, 1X/DAY
     Route: 067

REACTIONS (4)
  - Product quality issue [Unknown]
  - Pain [Unknown]
  - Product package associated injury [Unknown]
  - Underdose [Unknown]
